FAERS Safety Report 5409975-5 (Version None)
Quarter: 2007Q3

REPORT INFORMATION
  Report Type: 
  Country: None (occurrence: None)
  Receive Date: 20070809
  Receipt Date: 20070731
  Transmission Date: 20080115
  Serious: Yes (Other)
  Sender: FDA-Public Use
  Company Number: JP-PFIZER INC-2007060632

PATIENT
  Age: 57 Year
  Sex: Male

DRUGS (7)
  1. NORVASC [Suspect]
     Dosage: DAILY DOSE:10MG
     Route: 048
  2. AMARYL [Suspect]
     Dosage: DAILY DOSE:1MG
     Route: 048
  3. MICARDIS [Suspect]
     Dosage: DAILY DOSE:80MG
     Route: 048
  4. OMEPRAZOLE [Suspect]
     Dosage: DAILY DOSE:20MG
     Route: 048
  5. MUCOSTA [Suspect]
     Dosage: DAILY DOSE:200MG
     Route: 048
  6. WARFARIN SODIUM [Concomitant]
     Dosage: DAILY DOSE:3MG
     Route: 048
  7. ANPLAG [Concomitant]
     Dosage: DAILY DOSE:300MG
     Route: 048

REACTIONS (3)
  - HAEMATOCRIT INCREASED [None]
  - HAEMOGLOBIN INCREASED [None]
  - RED BLOOD CELL COUNT INCREASED [None]
